FAERS Safety Report 24035061 (Version 1)
Quarter: 2024Q3

REPORT INFORMATION
  Report Type: Spontaneous
  Country: JP (occurrence: JP)
  Receive Date: 20240701
  Receipt Date: 20240701
  Transmission Date: 20241016
  Serious: Yes (Other)
  Sender: PFIZER
  Company Number: JP-PFIZER INC-2019056754

PATIENT
  Age: 8 Decade
  Sex: Male

DRUGS (1)
  1. VORICONAZOLE [Suspect]
     Active Substance: VORICONAZOLE
     Indication: Bronchopulmonary aspergillosis
     Dosage: UNK
     Route: 048

REACTIONS (3)
  - Squamous cell carcinoma of skin [Unknown]
  - Actinic keratosis [Unknown]
  - Product use issue [Unknown]
